FAERS Safety Report 5962982-6 (Version None)
Quarter: 2008Q4

REPORT INFORMATION
  Report Type: 
  Country: None (occurrence: None)
  Receive Date: 20081124
  Receipt Date: 20081121
  Transmission Date: 20090506
  Serious: Yes (Death, Hospitalization)
  Sender: FDA-Public Use
  Company Number: DE-BRISTOL-MYERS SQUIBB COMPANY-13893896

PATIENT
  Age: 67 Year
  Sex: Male
  Weight: 64 kg

DRUGS (5)
  1. CISPLATIN [Suspect]
     Indication: HYPOPHARYNGEAL CANCER
     Route: 065
     Dates: start: 20070814, end: 20070814
  2. BLINDED: PEMETREXED DISODIUM [Suspect]
     Indication: HYPOPHARYNGEAL CANCER
     Route: 065
     Dates: start: 20070814, end: 20070814
  3. FOLIC ACID [Concomitant]
     Indication: PROPHYLAXIS
     Dates: start: 20070806
  4. VITAMIN B-12 [Concomitant]
     Indication: PROPHYLAXIS
     Dates: start: 20070806, end: 20070806
  5. DEXAMETHASONE 0.5MG TAB [Concomitant]
     Indication: PROPHYLAXIS
     Dates: start: 20070813, end: 20070815

REACTIONS (4)
  - ACINETOBACTER INFECTION [None]
  - NAUSEA [None]
  - ORTHOSTATIC HYPOTENSION [None]
  - VOMITING [None]
